FAERS Safety Report 18314595 (Version 1)
Quarter: 2020Q3

REPORT INFORMATION
  Report Type: Spontaneous
  Country: US (occurrence: US)
  Receive Date: 20200925
  Receipt Date: 20200925
  Transmission Date: 20201103
  Serious: No
  Sender: FDA-Public Use
  Company Number: US-PFIZER INC-2018213347

PATIENT
  Age: 60 Year
  Sex: Female
  Weight: 90.72 kg

DRUGS (4)
  1. LETROZOLE. [Concomitant]
     Active Substance: LETROZOLE
     Indication: BREAST CANCER METASTATIC
     Dosage: 2.5 MG, 1X/DAY
     Route: 048
     Dates: start: 2017
  2. IBRANCE [Suspect]
     Active Substance: PALBOCICLIB
     Dosage: 125 MG, CYCLIC (125 MG QD X21 DAYS Q 28 DAYS)
     Dates: start: 20180412
  3. IBRANCE [Suspect]
     Active Substance: PALBOCICLIB
     Indication: BREAST CANCER METASTATIC
     Dosage: 125 MG, CYCLIC (125MG CAPSULE ONCE A DAY BY MOUTH FOR 21 DAYS AND THEN 7 DAYS OFF)
     Route: 048
     Dates: start: 2017
  4. LETROZOLE. [Concomitant]
     Active Substance: LETROZOLE
     Indication: OESTROGEN THERAPY

REACTIONS (1)
  - Neoplasm progression [Unknown]
